FAERS Safety Report 8878828 (Version 1)
Quarter: 2012Q4

REPORT INFORMATION
  Report Type: 
  Country: CL (occurrence: CL)
  Receive Date: 20121026
  Receipt Date: 20121026
  Transmission Date: 20130627
  Serious: Yes (Other)
  Sender: FDA-Public Use
  Company Number: CL-BRISTOL-MYERS SQUIBB COMPANY-17049099

PATIENT
  Age: 61 Year
  Sex: Male

DRUGS (5)
  1. YERVOY [Suspect]
     Indication: METASTATIC MALIGNANT MELANOMA
     Dates: start: 20120808
  2. BETAMETHASONE [Concomitant]
  3. PHENYTOIN [Concomitant]
  4. OMEPRAZOLE [Concomitant]
  5. ATORVASTATIN [Concomitant]

REACTIONS (2)
  - Convulsion [Unknown]
  - Brain oedema [Unknown]
